FAERS Safety Report 10606036 (Version 1)
Quarter: 2014Q4

REPORT INFORMATION
  Report Type: Spontaneous
  Country: US (occurrence: None)
  Receive Date: 20141121
  Receipt Date: 20141121
  Transmission Date: 20150529
  Serious: Yes (Hospitalization, Other)
  Sender: FDA-Public Use
  Company Number: 201411062

PATIENT
  Age: 61 Year
  Sex: Male

DRUGS (1)
  1. TESTIM [Suspect]
     Active Substance: TESTOSTERONE
     Indication: BLOOD TESTOSTERONE DECREASED
     Route: 062
     Dates: start: 20100113, end: 20100321

REACTIONS (10)
  - Depression [None]
  - Economic problem [None]
  - Cardiac pacemaker insertion [None]
  - Fear [None]
  - Anhedonia [None]
  - Family stress [None]
  - Acute myocardial infarction [None]
  - Anxiety [None]
  - Unevaluable event [None]
  - Cardiovascular disorder [None]

NARRATIVE: CASE EVENT DATE: 20100321
